FAERS Safety Report 5724209-X (Version None)
Quarter: 2008Q2

REPORT INFORMATION
  Report Type: 
  Country: None (occurrence: None)
  Receive Date: 20080430
  Receipt Date: 20080424
  Transmission Date: 20081010
  Serious: Yes (Other)
  Sender: FDA-Public Use
  Company Number: US-MERCK-0804USA00408

PATIENT
  Age: 11 Year
  Sex: Male
  Weight: 85 kg

DRUGS (6)
  1. SINGULAIR [Suspect]
     Indication: ASTHMA
     Route: 048
     Dates: start: 20070612
  2. SINGULAIR [Suspect]
     Route: 048
     Dates: start: 20050101, end: 20070901
  3. SINGULAIR [Suspect]
     Indication: WHEEZING
     Route: 048
     Dates: start: 20070612
  4. SINGULAIR [Suspect]
     Route: 048
     Dates: start: 20050101, end: 20070901
  5. ALBUTEROL [Concomitant]
     Indication: WHEEZING
     Dates: start: 20070612
  6. AZMACORT [Concomitant]
     Indication: WHEEZING
     Route: 048
     Dates: start: 20070612

REACTIONS (5)
  - ABNORMAL BEHAVIOUR [None]
  - INAPPROPRIATE SCHEDULE OF DRUG ADMINISTRATION [None]
  - MOOD SWINGS [None]
  - OVERDOSE [None]
  - SUICIDAL IDEATION [None]
